FAERS Safety Report 17237753 (Version 1)
Quarter: 2020Q1

REPORT INFORMATION
  Report Type: Spontaneous
  Country: FR (occurrence: FR)
  Receive Date: 20200106
  Receipt Date: 20200106
  Transmission Date: 20200409
  Serious: Yes (Other)
  Sender: FDA-Public Use
  Company Number: FR-MYLANLABS-2020M1001665

PATIENT
  Age: 31 Year
  Sex: Male

DRUGS (1)
  1. EPIPEN [Suspect]
     Active Substance: EPINEPHRINE
     Indication: PRODUCT USED FOR UNKNOWN INDICATION
     Dosage: 0.15 MILLIGRAM, TOTAL
     Route: 058
     Dates: start: 20190907, end: 20190907

REACTIONS (4)
  - Accidental exposure to product [Recovered/Resolved]
  - Injection site pain [Recovered/Resolved]
  - Injection site oedema [Recovered/Resolved]
  - Vasoconstriction [Recovered/Resolved]

NARRATIVE: CASE EVENT DATE: 20190907
